FAERS Safety Report 24729989 (Version 4)
Quarter: 2025Q3

REPORT INFORMATION
  Report Type: Spontaneous
  Country: JP (occurrence: JP)
  Receive Date: 20241213
  Receipt Date: 20250715
  Transmission Date: 20251021
  Serious: Yes (Death, Hospitalization, Other)
  Sender: BRISTOL-MYERS SQUIBB COMPANY
  Company Number: JP-BRISTOL-MYERS SQUIBB COMPANY-2024-192640

PATIENT
  Age: 7 Decade
  Sex: Female

DRUGS (3)
  1. YERVOY [Suspect]
     Active Substance: IPILIMUMAB
     Indication: Oesophageal carcinoma recurrent
     Route: 041
     Dates: start: 202302
  2. OPDIVO [Suspect]
     Active Substance: NIVOLUMAB
     Indication: Oesophageal carcinoma recurrent
     Dates: start: 202302
  3. PACLITAXEL [Suspect]
     Active Substance: PACLITAXEL
     Indication: Oesophageal carcinoma recurrent

REACTIONS (10)
  - Immune-mediated enterocolitis [Unknown]
  - Dehydration [Unknown]
  - Cytomegalovirus enterocolitis [Unknown]
  - Immune-mediated gastritis [Unknown]
  - Immune-mediated oesophagitis [Unknown]
  - Haematochezia [Unknown]
  - Blood beta-D-glucan increased [Unknown]
  - Immune-mediated hypothyroidism [Unknown]
  - Anaemia [Unknown]
  - Septic shock [Fatal]
